FAERS Safety Report 10101997 (Version 2)
Quarter: 2014Q2

REPORT INFORMATION
  Report Type: Report from Study
  Country: NL (occurrence: NL)
  Receive Date: 20140424
  Receipt Date: 20140506
  Transmission Date: 20141212
  Serious: Yes (Death)
  Sender: FDA-Public Use
  Company Number: PHHY2014NL049792

PATIENT
  Age: 87 Year
  Sex: Male

DRUGS (13)
  1. ACLASTA [Suspect]
     Indication: OSTEOPOROSIS
     Dosage: 5 MG, ONCE EVERY 52 WEEKS
     Route: 042
     Dates: start: 20110426
  2. ACLASTA [Suspect]
     Indication: SPINAL COMPRESSION FRACTURE
     Dosage: 5 MG, ONCE EVERY 52 WEEKS
     Route: 042
     Dates: start: 20120417
  3. ACLASTA [Suspect]
     Dosage: 5 MG, ONCE EVERY 52 WEEKS
     Route: 042
     Dates: start: 20130423
  4. ASCAL [Concomitant]
     Dosage: 80 UKN, UNK
  5. PERSANTIN [Concomitant]
     Dosage: 200 2X
  6. OMNIC [Concomitant]
     Dosage: 0.5 UKN, UNK
  7. SOTALOL [Concomitant]
     Dosage: 40 UKN, QD
  8. OMEPRAZOLE [Concomitant]
     Dosage: 40 UKN, UNK
  9. LIPITOR [Concomitant]
     Dosage: 10 MG, UNK
  10. CALCICHEW [Concomitant]
  11. AVODART [Concomitant]
  12. TRIAMTERENE [Concomitant]
  13. HYDROCHLOROTHIAZIDE [Concomitant]

REACTIONS (1)
  - Death [Fatal]
